FAERS Safety Report 8408225-5 (Version None)
Quarter: 2012Q2

REPORT INFORMATION
  Report Type: 
  Country: None (occurrence: None)
  Receive Date: 20120604
  Receipt Date: 20120524
  Transmission Date: 20120825
  Serious: Yes (Hospitalization)
  Sender: FDA-Public Use
  Company Number: US-ELI_LILLY_AND_COMPANY-US201205008795

PATIENT
  Sex: Female

DRUGS (3)
  1. COUMADIN [Concomitant]
     Dosage: UNK
  2. OXYGEN [Concomitant]
     Dosage: UNK
  3. FORTEO [Suspect]
     Indication: OSTEOPOROSIS
     Dosage: 20 UG, QD

REACTIONS (3)
  - MITRAL VALVE REPLACEMENT [None]
  - MUSCLE SPASMS [None]
  - BLOOD PRESSURE DECREASED [None]
